FAERS Safety Report 9347697 (Version 1)
Quarter: 2013Q2

REPORT INFORMATION
  Report Type: Spontaneous
  Country: US (occurrence: None)
  Receive Date: 20130611
  Receipt Date: 20130611
  Transmission Date: 20140414
  Serious: Yes (Hospitalization)
  Sender: FDA-Public Use
  Company Number: None

PATIENT
  Age: 59 Year
  Sex: Female
  Weight: 117.5 kg

DRUGS (5)
  1. XARELTO 20 GM JANSSEN [Suspect]
     Indication: PULMONARY EMBOLISM
     Route: 048
  2. ACYCLOVIR [Concomitant]
  3. PREBAGALIN [Concomitant]
  4. ALLOPURINOL [Concomitant]
  5. ARIXTRA [Concomitant]

REACTIONS (4)
  - Pericardial effusion [None]
  - Cardiac tamponade [None]
  - Sinus tachycardia [None]
  - Pericarditis [None]
